FAERS Safety Report 7512005-2 (Version None)
Quarter: 2011Q2

REPORT INFORMATION
  Report Type: 
  Country: None (occurrence: None)
  Receive Date: 20110531
  Receipt Date: 20110526
  Transmission Date: 20111010
  Serious: Yes (Death, Hospitalization)
  Sender: FDA-Public Use
  Company Number: PHHY2010MX79819

PATIENT
  Age: 68 Year
  Sex: Male

DRUGS (1)
  1. EXELON [Suspect]
     Indication: DEMENTIA ALZHEIMER'S TYPE
     Dosage: 9.5 MG/24 HRS (PATCH 10)
     Route: 062
     Dates: start: 20080101

REACTIONS (4)
  - PULMONARY CONGESTION [None]
  - RESPIRATORY ARREST [None]
  - MUSCLE DISORDER [None]
  - PNEUMONIA [None]
